FAERS Safety Report 6492535-5 (Version None)
Quarter: 2009Q4

REPORT INFORMATION
  Report Type: 
  Country: None (occurrence: None)
  Receive Date: 20091214
  Receipt Date: 20091125
  Transmission Date: 20100525
  Serious: No
  Sender: FDA-Public Use
  Company Number: JP-ROCHE-673036

PATIENT
  Age: 36 Year
  Sex: Female

DRUGS (2)
  1. TAMIFLU [Suspect]
     Indication: DRUG USE FOR UNKNOWN INDICATION
     Dosage: FREQUENCY: 3/2 DAY(S)
     Route: 065
     Dates: start: 20091123, end: 20091124
  2. TAMIFLU [Suspect]
     Route: 065
     Dates: start: 20091101

REACTIONS (5)
  - ABDOMINAL PAIN [None]
  - DIZZINESS [None]
  - HEADACHE [None]
  - NAUSEA [None]
  - OVERDOSE [None]
